FAERS Safety Report 23921613 (Version 1)
Quarter: 2024Q2

REPORT INFORMATION
  Report Type: Spontaneous
  Country: US (occurrence: US)
  Receive Date: 20240530
  Receipt Date: 20240530
  Transmission Date: 20240716
  Serious: No
  Sender: FDA-Public Use
  Company Number: US-BRISTOL-MYERS SQUIBB COMPANY-2024-083008

PATIENT
  Age: 82 Year
  Sex: Female
  Weight: 83.91 kg

DRUGS (2)
  1. ELIQUIS [Suspect]
     Active Substance: APIXABAN
     Indication: Thrombosis
     Route: 048
     Dates: start: 20240519
  2. ELIQUIS [Suspect]
     Active Substance: APIXABAN
     Route: 048

REACTIONS (1)
  - Inability to afford medication [Unknown]

NARRATIVE: CASE EVENT DATE: 20240501
